FAERS Safety Report 8952900 (Version 1)
Quarter: 2012Q4

REPORT INFORMATION
  Report Type: 
  Country: US (occurrence: US)
  Receive Date: 20121203
  Receipt Date: 20121203
  Transmission Date: 20130627
  Serious: Yes (Other)
  Sender: FDA-Public Use
  Company Number: CHPA2012US024017

PATIENT
  Age: 36 Year
  Sex: Female

DRUGS (1)
  1. GAS-X [Suspect]
     Indication: NAUSEA
     Dosage: 1 to 2 DF, A DAY
     Route: 048

REACTIONS (5)
  - Gastrooesophageal reflux disease [Recovered/Resolved]
  - Dizziness [Recovered/Resolved]
  - Nausea [Recovered/Resolved]
  - Dyspepsia [Recovered/Resolved]
  - Off label use [Unknown]
